FAERS Safety Report 25603529 (Version 1)
Quarter: 2025Q3

REPORT INFORMATION
  Report Type: Spontaneous
  Country: US (occurrence: US)
  Receive Date: 20250724
  Receipt Date: 20250724
  Transmission Date: 20251021
  Serious: Yes (Other)
  Sender: BRISTOL-MYERS SQUIBB COMPANY
  Company Number: US-BRISTOL-MYERS SQUIBB COMPANY-2025-103935

PATIENT
  Age: 72 Year
  Sex: Female
  Weight: 41.73 kg

DRUGS (1)
  1. ELIQUIS [Suspect]
     Active Substance: APIXABAN
     Indication: Coagulopathy
     Route: 048

REACTIONS (3)
  - Gallbladder obstruction [Not Recovered/Not Resolved]
  - Malabsorption [Unknown]
  - Off label use [Unknown]

NARRATIVE: CASE EVENT DATE: 20250101
